FAERS Safety Report 5288113-6 (Version None)
Quarter: 2007Q2

REPORT INFORMATION
  Report Type: 
  Country: None (occurrence: None)
  Receive Date: 20070405
  Receipt Date: 20070329
  Transmission Date: 20071010
  Serious: Yes (Other)
  Sender: FDA-Public Use
  Company Number: 2005UW00381

PATIENT
  Age: 59 Year
  Sex: Female
  Weight: 86.1 kg

DRUGS (11)
  1. ARIMIDEX [Suspect]
     Indication: BREAST CANCER
     Route: 048
     Dates: start: 20040401
  2. SYNTHROID [Concomitant]
  3. LIPITOR [Concomitant]
  4. XANAX [Concomitant]
     Dosage: 6 PER DAY
  5. DIFLUCAN [Concomitant]
  6. EFFEXOR XR [Concomitant]
  7. FLEXERIL [Concomitant]
  8. NEXIUM [Concomitant]
     Route: 048
  9. ULTRACET [Concomitant]
     Indication: PAIN
  10. ASPIRIN [Concomitant]
  11. CALCIUM [Concomitant]

REACTIONS (7)
  - ARTHRALGIA [None]
  - BLOOD THYROID STIMULATING HORMONE DECREASED [None]
  - FALL [None]
  - FIBROMYALGIA [None]
  - IMPAIRED HEALING [None]
  - MYALGIA [None]
  - RIB FRACTURE [None]
